FAERS Safety Report 4966644-3 (Version None)
Quarter: 2006Q2

REPORT INFORMATION
  Report Type: 
  Country: None (occurrence: None)
  Receive Date: 20060407
  Receipt Date: 20060330
  Transmission Date: 20061013
  Serious: Yes (Other)
  Sender: FDA-Public Use
  Company Number: US-ABBOTT-06P-163-0329432-00

PATIENT
  Sex: Female
  Weight: 77.18 kg

DRUGS (5)
  1. HUMIRA [Suspect]
     Indication: RHEUMATOID ARTHRITIS
     Route: 058
     Dates: start: 20030801
  2. PREDNISONE [Concomitant]
     Indication: RHEUMATOID ARTHRITIS
     Route: 048
  3. BONIVA [Concomitant]
     Indication: OSTEOPENIA
     Route: 048
  4. KETOPROFEN [Concomitant]
     Indication: INFLAMMATION
     Route: 048
  5. OMEPRAZOLE [Concomitant]
     Indication: STOMACH DISCOMFORT
     Route: 048

REACTIONS (1)
  - ANAEMIA [None]
